FAERS Safety Report 19415050 (Version 2)
Quarter: 2021Q3

REPORT INFORMATION
  Report Type: Report from Study
  Country: US (occurrence: US)
  Receive Date: 20210615
  Receipt Date: 20210716
  Transmission Date: 20211014
  Serious: Yes (Other)
  Sender: FDA-Public Use
  Company Number: US-ROCHE-2844222

PATIENT
  Age: 44 Year
  Sex: Female
  Weight: 63.7 kg

DRUGS (8)
  1. BLINDED BEVACIZUMAB [Suspect]
     Active Substance: BEVACIZUMAB
     Indication: BILE DUCT CANCER
     Dosage: DATE OF MOST RECENT DOSE OF STUDY DRUG PRIOR TO SAE: 10/MAY/2021
     Route: 042
     Dates: start: 20210510
  2. GEMCITABINE. [Suspect]
     Active Substance: GEMCITABINE
     Indication: BILE DUCT CANCER
     Dosage: DATE OF MOST RECENT DOSE OF GEMCITABINE 1000 MG PRIOR TO SAE: 17/MAY/2021
     Route: 042
     Dates: start: 20210510
  3. CISPLATIN. [Suspect]
     Active Substance: CISPLATIN
     Indication: BILE DUCT CANCER
     Dosage: DATE OF MOST RECENT DOSE OF STUDY DRUG PRIOR TO SAE: 17/MAY/2021
     Route: 042
     Dates: start: 20210510
  4. MIRALAX [Concomitant]
     Active Substance: POLYETHYLENE GLYCOL 3350
     Indication: CONSTIPATION
     Dates: start: 20210513
  5. ATEZOLIZUMAB. [Suspect]
     Active Substance: ATEZOLIZUMAB
     Indication: BILE DUCT CANCER
     Dosage: DATE OF MOST RECENT DOSE OF STUDY DRUG PRIOR TO SAE: 02/JUN/2021
     Route: 042
     Dates: start: 20210510
  6. IBUPROFEN. [Concomitant]
     Active Substance: IBUPROFEN
     Indication: ABDOMINAL PAIN
  7. TRAMADOL. [Concomitant]
     Active Substance: TRAMADOL
     Indication: ABDOMINAL PAIN
  8. OXYCODONE [Concomitant]
     Active Substance: OXYCODONE
     Indication: PAIN
     Dates: start: 20210513

REACTIONS (1)
  - Hypertension [Recovered/Resolved]

NARRATIVE: CASE EVENT DATE: 20210602
